FAERS Safety Report 15805774 (Version 13)
Quarter: 2020Q2

REPORT INFORMATION
  Report Type: Spontaneous
  Country: US (occurrence: US)
  Receive Date: 20190110
  Receipt Date: 20200626
  Transmission Date: 20200713
  Serious: Yes (Life-Threatening, Hospitalization, Disabling, Other)
  Sender: FDA-Public Use
  Company Number: US-009507513-1901USA000599

PATIENT
  Sex: Female

DRUGS (3)
  1. PEGINTRON [Suspect]
     Active Substance: PEGINTERFERON ALFA-2B
     Indication: HEPATITIS C
     Dosage: UNK
     Route: 058
     Dates: start: 201101, end: 201106
  2. REBETOL [Suspect]
     Active Substance: RIBAVIRIN
     Indication: HEPATITIS C
     Dosage: UNK
     Route: 048
     Dates: start: 201101, end: 201106
  3. CYMBALTA [Concomitant]
     Active Substance: DULOXETINE HYDROCHLORIDE
     Dosage: UNK

REACTIONS (64)
  - B-lymphocyte abnormalities [Not Recovered/Not Resolved]
  - Myalgia [Not Recovered/Not Resolved]
  - Pneumothorax [Unknown]
  - Respiratory tract infection [Unknown]
  - Thyroid hormones decreased [Unknown]
  - Heart rate increased [Unknown]
  - Arthritis [Unknown]
  - Bone density decreased [Not Recovered/Not Resolved]
  - Nosocomial infection [Not Recovered/Not Resolved]
  - Chronic fatigue syndrome [Unknown]
  - Atelectasis [Unknown]
  - Left ventricular hypertrophy [Unknown]
  - Immunodeficiency common variable [Not Recovered/Not Resolved]
  - Gait disturbance [Not Recovered/Not Resolved]
  - Loss of libido [Not Recovered/Not Resolved]
  - Platelet count decreased [Not Recovered/Not Resolved]
  - Pneumonia [Not Recovered/Not Resolved]
  - Cytomegalovirus infection [Unknown]
  - Epstein-Barr virus infection [Unknown]
  - Alopecia [Unknown]
  - Nausea [Not Recovered/Not Resolved]
  - Depression [Not Recovered/Not Resolved]
  - Helicobacter infection [Unknown]
  - Cardiac failure [Unknown]
  - Thyroid disorder [Unknown]
  - Blood thyroid stimulating hormone increased [Unknown]
  - Pulmonary mass [Not Recovered/Not Resolved]
  - Pain in extremity [Not Recovered/Not Resolved]
  - White blood cell count decreased [Not Recovered/Not Resolved]
  - Respiratory tract infection [Unknown]
  - Syncope [Unknown]
  - Gingival bleeding [Unknown]
  - Muscle spasms [Unknown]
  - Migraine [Not Recovered/Not Resolved]
  - Intervertebral disc degeneration [Unknown]
  - Chronic obstructive pulmonary disease [Not Recovered/Not Resolved]
  - Vitamin B12 deficiency [Unknown]
  - Colitis [Unknown]
  - Herpes simplex [Not Recovered/Not Resolved]
  - Dysgraphia [Unknown]
  - Fibromyalgia [Unknown]
  - Hand deformity [Unknown]
  - Scoliosis [Unknown]
  - Adverse event [Unknown]
  - Upper respiratory tract infection [Not Recovered/Not Resolved]
  - Dementia [Not Recovered/Not Resolved]
  - Catheter placement [Unknown]
  - Adverse drug reaction [Unknown]
  - Systolic anterior motion of mitral valve [Unknown]
  - Pain [Unknown]
  - Tobacco abuse [Unknown]
  - Carpal tunnel syndrome [Unknown]
  - Sjogren^s syndrome [Not Recovered/Not Resolved]
  - Bone pain [Not Recovered/Not Resolved]
  - Bronchitis [Not Recovered/Not Resolved]
  - Vomiting [Not Recovered/Not Resolved]
  - Vein rupture [Unknown]
  - Left ventricle outflow tract obstruction [Unknown]
  - Pneumonitis [Unknown]
  - Executive dysfunction [Unknown]
  - Condition aggravated [Unknown]
  - Quality of life decreased [Not Recovered/Not Resolved]
  - Herpes zoster [Unknown]
  - Hypertension [Unknown]

NARRATIVE: CASE EVENT DATE: 2011
